FAERS Safety Report 12994586 (Version 1)
Quarter: 2016Q4

REPORT INFORMATION
  Report Type: Spontaneous
  Country: US (occurrence: US)
  Receive Date: 20161202
  Receipt Date: 20161202
  Transmission Date: 20170207
  Serious: Yes (Other)
  Sender: FDA-Public Use
  Company Number: US-PFIZER INC-2016556057

PATIENT
  Age: 27 Year
  Sex: Female

DRUGS (3)
  1. DIDANOSINE. [Suspect]
     Active Substance: DIDANOSINE
     Dosage: 400 UNK, DAILY
     Route: 048
  2. STAVUDINE. [Suspect]
     Active Substance: STAVUDINE
     Dosage: 80 UNK, DAILY
     Route: 048
  3. NELFINAVIR MESILATE [Suspect]
     Active Substance: NELFINAVIR MESYLATE
     Dosage: 2500 UNK, DAILY
     Route: 048

REACTIONS (4)
  - Treatment noncompliance [Unknown]
  - CD4 lymphocytes decreased [Unknown]
  - Pneumocystis jirovecii pneumonia [Unknown]
  - Stillbirth [Unknown]

NARRATIVE: CASE EVENT DATE: 19990523
